FAERS Safety Report 26199872 (Version 1)
Quarter: 2025Q4

REPORT INFORMATION
  Report Type: Spontaneous
  Country: US (occurrence: US)
  Receive Date: 20251225
  Receipt Date: 20251225
  Transmission Date: 20260117
  Serious: No
  Sender: DR REDDYS
  Company Number: None

PATIENT
  Age: 27 Year
  Sex: Male

DRUGS (1)
  1. LEVOTHYROXINE [Suspect]
     Active Substance: LEVOTHYROXINE
     Indication: Central hypothyroidism

REACTIONS (2)
  - Blood alkaline phosphatase increased [Recovered/Resolved]
  - Blood alkaline phosphatase increased [Recovered/Resolved]
